FAERS Safety Report 8585188 (Version 2)
Quarter: 2012Q4

REPORT INFORMATION
  Report Type: 
  Country: US (occurrence: US)
  Receive Date: 20120530
  Receipt Date: 20121204
  Transmission Date: 20130627
  Serious: Yes (Other)
  Sender: FDA-Public Use
  Company Number: US-US-EMD SERONO, INC.-7134860

PATIENT
  Sex: Female
  Weight: 71 kg

DRUGS (1)
  1. REBIF [Suspect]
     Indication: PRODUCT USED FOR UNKNOWN INDICATION
     Route: 058
     Dates: start: 20031015

REACTIONS (3)
  - Intervertebral disc protrusion [Recovering/Resolving]
  - Night sweats [Recovering/Resolving]
  - Insomnia [Not Recovered/Not Resolved]
